FAERS Safety Report 4632776-2 (Version None)
Quarter: 2005Q2

REPORT INFORMATION
  Report Type: 
  Country: None (occurrence: None)
  Receive Date: 20050408
  Receipt Date: 20050408
  Transmission Date: 20051028
  Serious: Yes (Hospitalization)
  Sender: FDA-Public Use
  Company Number: None

PATIENT
  Age: 46 Year
  Sex: Female
  Weight: 46.2669 kg

DRUGS (12)
  1. COMBIVIR [Suspect]
     Indication: BILIARY CIRRHOSIS
     Dosage: LAMIVUDINE 150 MG; ZIDOVUDINE 300 MG QD PO
     Route: 048
     Dates: start: 20040908, end: 20050224
  2. OXYBUTININ [Concomitant]
  3. RESTORIL [Concomitant]
  4. VIT D [Concomitant]
  5. HYDROXYZINE [Concomitant]
  6. URSO 250 [Concomitant]
  7. VIT E [Concomitant]
  8. LORAZEPAM [Concomitant]
  9. NASONEX [Concomitant]
  10. ALBUTEROL [Concomitant]
  11. IBUPROFEN [Concomitant]
  12. ARTIFICIAL TEARS AND SALIVA [Concomitant]

REACTIONS (4)
  - ABDOMINAL DISTENSION [None]
  - ASCITES [None]
  - HAEMOGLOBIN DECREASED [None]
  - OEDEMA PERIPHERAL [None]
